FAERS Safety Report 21540903 (Version 9)
Quarter: 2023Q2

REPORT INFORMATION
  Report Type: Report from Study
  Country: US (occurrence: US)
  Receive Date: 20221102
  Receipt Date: 20230613
  Transmission Date: 20230722
  Serious: No
  Sender: FDA-Public Use
  Company Number: US-002147023-NVSC2022US246489

PATIENT
  Sex: Female

DRUGS (2)
  1. COSENTYX [Suspect]
     Active Substance: SECUKINUMAB
     Indication: Psoriasis
     Dosage: 300 MG, QMO
     Route: 058
  2. COSENTYX [Suspect]
     Active Substance: SECUKINUMAB
     Indication: Psoriatic arthropathy

REACTIONS (8)
  - Skin infection [Unknown]
  - Psoriasis [Unknown]
  - Pruritus [Unknown]
  - Alopecia [Unknown]
  - Pain of skin [Unknown]
  - Skin disorder [Unknown]
  - Inflammation [Unknown]
  - Therapeutic product effect incomplete [Unknown]
